FAERS Safety Report 22635205 (Version 1)
Quarter: 2023Q2

REPORT INFORMATION
  Report Type: Spontaneous
  Country: US (occurrence: None)
  Receive Date: 20230620
  Receipt Date: 20230620
  Transmission Date: 20230722
  Serious: No
  Sender: FDA-Public Use
  Company Number: None

PATIENT
  Sex: Female

DRUGS (8)
  1. MEKINIST [Suspect]
     Active Substance: TRAMETINIB DIMETHYL SULFOXIDE
     Indication: Ovarian cancer
     Dosage: 2 TABS QD PO
  2. TAMOXIFEN [Concomitant]
     Active Substance: TAMOXIFEN
  3. SIMVASTATIN [Concomitant]
     Active Substance: SIMVASTATIN
  4. PRANDIN [Concomitant]
     Active Substance: REPAGLINIDE
  5. JANUVIA [Concomitant]
     Active Substance: SITAGLIPTIN PHOSPHATE
  6. GLIMEPIRIDE [Concomitant]
     Active Substance: GLIMEPIRIDE
  7. DIPHENHYDRAMINE\ZINC ACETATE [Concomitant]
     Active Substance: DIPHENHYDRAMINE\ZINC ACETATE
  8. AMLODIPINE [Concomitant]
     Active Substance: AMLODIPINE BESYLATE

REACTIONS (1)
  - Pleural effusion [None]
